FAERS Safety Report 21585758 (Version 1)
Quarter: 2022Q4

REPORT INFORMATION
  Report Type: Spontaneous
  Country: DE (occurrence: None)
  Receive Date: 20221111
  Receipt Date: 20221111
  Transmission Date: 20230113
  Serious: Yes (Other)
  Sender: FDA-Public Use
  Company Number: DE-Hikma Pharmaceuticals-DE-H14001-22-02837

PATIENT
  Age: 68 Year
  Sex: Female

DRUGS (11)
  1. PACLITAXEL [Suspect]
     Active Substance: PACLITAXEL
     Indication: Angiosarcoma
     Dosage: CUMULATIVE DOSE: 1344 MG/M2 (8 CYCLES)
     Route: 065
     Dates: start: 202007, end: 202105
  2. PACLITAXEL [Suspect]
     Active Substance: PACLITAXEL
     Indication: Epithelioid sarcoma
  3. PACLITAXEL [Suspect]
     Active Substance: PACLITAXEL
     Indication: Pleural sarcoma
  4. TORSEMIDE [Concomitant]
     Active Substance: TORSEMIDE
     Indication: Cardiovascular event prophylaxis
     Route: 065
     Dates: start: 202007
  5. RAMIPRIL [Concomitant]
     Active Substance: RAMIPRIL
     Indication: Cardiovascular event prophylaxis
     Route: 065
     Dates: start: 202007
  6. CARVEDILOL [Concomitant]
     Active Substance: CARVEDILOL
     Indication: Cardiovascular event prophylaxis
     Route: 065
     Dates: start: 202007
  7. SPIRONOLACTONE [Concomitant]
     Active Substance: SPIRONOLACTONE
     Indication: Cardiovascular event prophylaxis
     Route: 065
     Dates: start: 202007
  8. IVABRADINE [Concomitant]
     Active Substance: IVABRADINE
     Indication: Cardiovascular event prophylaxis
     Route: 065
  9. RADIATION THERAPY OF THE PLEURA [Concomitant]
     Indication: Angiosarcoma
     Dosage: UNKNOWN
     Route: 065
  10. RADIATION THERAPY OF THE PLEURA [Concomitant]
     Indication: Epithelioid sarcoma
  11. RADIATION THERAPY OF THE PLEURA [Concomitant]
     Indication: Pleural sarcoma

REACTIONS (3)
  - Malignant neoplasm progression [Unknown]
  - Cardiac failure [Unknown]
  - Hypotension [Unknown]
